FAERS Safety Report 8886962 (Version 2)
Quarter: 2012Q4

REPORT INFORMATION
  Report Type: 
  Country: US (occurrence: US)
  Receive Date: 20121105
  Receipt Date: 20121129
  Transmission Date: 20130627
  Serious: No
  Sender: FDA-Public Use
  Company Number: US-PFIZER INC-2012271956

PATIENT
  Age: 60 Year

DRUGS (3)
  1. ERYTHROMYCIN [Suspect]
     Dosage: UNK
  2. AZITHROMYCIN [Suspect]
     Dosage: UNK
  3. ASA [Suspect]
     Dosage: UNK

REACTIONS (1)
  - Drug hypersensitivity [Unknown]
